FAERS Safety Report 7655767-6 (Version None)
Quarter: 2011Q3

REPORT INFORMATION
  Report Type: 
  Country: None (occurrence: None)
  Receive Date: 20110728
  Receipt Date: 20110718
  Transmission Date: 20111222
  Serious: Yes (Disabling)
  Sender: FDA-Public Use
  Company Number: 2011SP033525

PATIENT
  Age: 52 Year
  Sex: Male

DRUGS (1)
  1. PEG-INTRON [Suspect]
     Indication: HEPATITIS

REACTIONS (2)
  - INCORRECT DOSE ADMINISTERED [None]
  - IMPAIRED WORK ABILITY [None]
